FAERS Safety Report 10916918 (Version 1)
Quarter: 2015Q1

REPORT INFORMATION
  Report Type: Spontaneous
  Country: US (occurrence: None)
  Receive Date: 20150312
  Receipt Date: 20150312
  Transmission Date: 20150721
  Serious: No
  Sender: FDA-Public Use
  Company Number: None

PATIENT
  Sex: Male
  Weight: 110.68 kg

DRUGS (1)
  1. SILDENAFIL 20MG TORRENT [Suspect]
     Active Substance: SILDENAFIL
     Indication: ERECTILE DYSFUNCTION
     Dosage: TAKE 5 TABS 1-4 HRS PRIOR TO SEXUAL ACTIVITY MAXIMUM  OF TABS PER 24 HRS
     Route: 048
     Dates: start: 201407

REACTIONS (1)
  - Drug ineffective [None]
